FAERS Safety Report 5903303-4 (Version None)
Quarter: 2008Q3

REPORT INFORMATION
  Report Type: 
  Country: None (occurrence: None)
  Receive Date: 20080930
  Receipt Date: 20080923
  Transmission Date: 20090109
  Serious: Yes (Hospitalization, Other)
  Sender: FDA-Public Use
  Company Number: B0482292A

PATIENT
  Age: 61 Year
  Sex: Male

DRUGS (6)
  1. ZIAGEN [Suspect]
     Indication: ANTIRETROVIRAL THERAPY
     Route: 065
     Dates: start: 20070601
  2. ZIDOVUDINE [Concomitant]
     Indication: ANTIRETROVIRAL THERAPY
     Dates: start: 19980101
  3. LAMIVUDINE [Concomitant]
     Indication: ANTIRETROVIRAL THERAPY
     Dates: start: 19980101
  4. NEVIRAPINE [Concomitant]
     Indication: ANTIRETROVIRAL THERAPY
     Dates: start: 19980101
  5. VALPROIC ACID [Concomitant]
  6. COTRIMOXAZOLE [Concomitant]
     Dosage: 960MG PER DAY

REACTIONS (14)
  - BLOOD CREATINE PHOSPHOKINASE INCREASED [None]
  - DIARRHOEA [None]
  - DRUG ABUSE [None]
  - DRUG HYPERSENSITIVITY [None]
  - EPILEPSY [None]
  - INJURY [None]
  - MUSCLE RIGIDITY [None]
  - MYALGIA [None]
  - MYOGLOBINURIA [None]
  - NEUROLEPTIC MALIGNANT SYNDROME [None]
  - PYREXIA [None]
  - RASH [None]
  - RHABDOMYOLYSIS [None]
  - VIRAL INFECTION [None]
